FAERS Safety Report 25519121 (Version 1)
Quarter: 2025Q3

REPORT INFORMATION
  Report Type: Spontaneous
  Country: US (occurrence: US)
  Receive Date: 20250704
  Receipt Date: 20250704
  Transmission Date: 20251020
  Serious: Yes (Other)
  Sender: MERCK SHARP & DOHME LLC
  Company Number: US-009507513-2299730

PATIENT
  Age: 57 Year
  Sex: Female

DRUGS (2)
  1. ERTAPENEM [Suspect]
     Active Substance: ERTAPENEM
     Indication: Escherichia pyelonephritis
  2. MEROPENEM [Concomitant]
     Active Substance: MEROPENEM
     Indication: Escherichia pyelonephritis

REACTIONS (1)
  - Neutropenia [Recovered/Resolved]
